FAERS Safety Report 5876309-1 (Version None)
Quarter: 2008Q3

REPORT INFORMATION
  Report Type: 
  Country: None (occurrence: None)
  Receive Date: 20080910
  Receipt Date: 20080903
  Transmission Date: 20090109
  Serious: Yes (Hospitalization)
  Sender: FDA-Public Use
  Company Number: CA-ABBOTT-08P-028-0474472-00

PATIENT
  Sex: Male
  Weight: 65.83 kg

DRUGS (14)
  1. LUPRON DEPOT [Suspect]
     Indication: DRUG USE FOR UNKNOWN INDICATION
     Dates: start: 20070917
  2. ASATOL [Concomitant]
     Indication: DRUG USE FOR UNKNOWN INDICATION
     Route: 048
  3. ENALAPRIL MALEATE [Concomitant]
     Indication: HYPERTENSION
     Dosage: 20MG QAM AND 10MG QPM
     Route: 048
  4. TYLENOL ARTHRITIC [Concomitant]
     Indication: PAIN
     Dosage: 2 TABLETS Q8H
     Route: 048
     Dates: start: 20030101
  5. TYLENOL ARTHRITIC [Concomitant]
     Indication: PELVIC FRACTURE
  6. DILTIAZEM HYDROCHLORIDE [Concomitant]
     Indication: ANGINA PECTORIS
     Route: 048
  7. DILTIAZEM HYDROCHLORIDE [Concomitant]
     Indication: HYPERTENSION
  8. HYDROXOCOBALAMIN [Concomitant]
     Indication: DRUG USE FOR UNKNOWN INDICATION
     Route: 048
  9. PANTOPRAZOLE [Concomitant]
     Indication: PROPHYLAXIS
     Route: 048
  10. MORNIFLUMATE [Concomitant]
     Indication: DRUG USE FOR UNKNOWN INDICATION
     Route: 048
  11. CLONAZEPAM [Concomitant]
     Indication: ANXIETY
     Dosage: 3MG BID PRN
     Route: 048
  12. CELECOXIB [Concomitant]
     Indication: DRUG USE FOR UNKNOWN INDICATION
     Route: 048
  13. ARTECHOL [Concomitant]
     Indication: ANTACID THERAPY
     Route: 048
  14. AGAROL [Concomitant]
     Indication: LAXATIVE SUPPORTIVE CARE
     Route: 048

REACTIONS (2)
  - FALL [None]
  - LOWER LIMB FRACTURE [None]
